FAERS Safety Report 17729543 (Version 2)
Quarter: 2020Q3

REPORT INFORMATION
  Report Type: Spontaneous
  Country: IE (occurrence: IE)
  Receive Date: 20200430
  Receipt Date: 20200714
  Transmission Date: 20201102
  Serious: Yes (Death)
  Sender: FDA-Public Use
  Company Number: IE-PFIZER INC-2020172012

PATIENT
  Age: 19 Year
  Sex: Female

DRUGS (6)
  1. XANAX [Suspect]
     Active Substance: ALPRAZOLAM
     Dosage: UNK
  2. NORDIAZEPAM [Suspect]
     Active Substance: NORDAZEPAM
     Dosage: UNK
  3. METHADONE [Suspect]
     Active Substance: METHADONE HYDROCHLORIDE
     Dosage: UNK
  4. BENZOYLECGONINE [Suspect]
     Active Substance: BENZOYLECGONINE
     Dosage: UNK
  5. DIAZEPAM. [Suspect]
     Active Substance: DIAZEPAM
     Dosage: UNK
  6. OLANZAPINE. [Suspect]
     Active Substance: OLANZAPINE
     Dosage: UNK

REACTIONS (2)
  - Death [Fatal]
  - Suspected counterfeit product [Fatal]

NARRATIVE: CASE EVENT DATE: 20200427
